FAERS Safety Report 5730550-7 (Version None)
Quarter: 2008Q2

REPORT INFORMATION
  Report Type: 
  Country: None (occurrence: None)
  Receive Date: 20080507
  Receipt Date: 20080429
  Transmission Date: 20081010
  Serious: Yes (Other)
  Sender: FDA-Public Use
  Company Number: PL-MERCK-0804POL00024

PATIENT
  Age: 12 Year
  Sex: Female
  Weight: 36 kg

DRUGS (4)
  1. SINGULAIR [Suspect]
     Indication: ASTHMA
     Route: 048
     Dates: start: 20050701, end: 20080401
  2. FLUTICASONE PROPIONATE [Concomitant]
     Indication: ASTHMA
     Dates: start: 20040601
  3. LORATADINE [Concomitant]
     Indication: ASTHMA
     Route: 065
     Dates: start: 20040101
  4. SALMETEROL XINAFOATE [Concomitant]
     Indication: ASTHMA
     Route: 065
     Dates: start: 20040101

REACTIONS (3)
  - ANXIETY [None]
  - DEPRESSION [None]
  - SUICIDAL IDEATION [None]
